FAERS Safety Report 9906692 (Version 1)
Quarter: 2014Q1

REPORT INFORMATION
  Report Type: Spontaneous
  Country: US (occurrence: US)
  Receive Date: 20140218
  Receipt Date: 20140218
  Transmission Date: 20141002
  Serious: Yes (Hospitalization, Congenital Anomaly, Other)
  Sender: FDA-Public Use
  Company Number: US-ABBVIE-14P-163-1200584-00

PATIENT
  Sex: Female

DRUGS (1)
  1. DEPAKOTE [Suspect]
     Indication: MATERNAL EXPOSURE TIMING UNSPECIFIED
     Route: 064

REACTIONS (10)
  - Neonatal cardiac failure [Unknown]
  - Heart disease congenital [Unknown]
  - Heart disease congenital [Unknown]
  - Foetal exposure during pregnancy [Unknown]
  - Foetal heart rate deceleration abnormality [Unknown]
  - Congenital hypothyroidism [Unknown]
  - Lung disorder [Recovered/Resolved]
  - Poor weight gain neonatal [Recovered/Resolved]
  - Asthma [Unknown]
  - Attention deficit/hyperactivity disorder [Unknown]
